FAERS Safety Report 12488049 (Version 1)
Quarter: 2016Q2

REPORT INFORMATION
  Report Type: Spontaneous
  Country: US (occurrence: US)
  Receive Date: 20160622
  Receipt Date: 20160622
  Transmission Date: 20160815
  Serious: Yes (Hospitalization, Other)
  Sender: FDA-Public Use
  Company Number: US-ALKEM LABORATORIES LIMITED-US-ALKEM-2016-00002

PATIENT
  Age: 69 Year
  Sex: Female

DRUGS (3)
  1. PREDNISONE. [Concomitant]
     Active Substance: PREDNISONE
     Indication: SPONDYLOARTHROPATHY
     Dosage: 10 MG, OD
  2. IMMUNGLOBULIN [Concomitant]
     Active Substance: HUMAN IMMUNOGLOBULIN G
     Indication: SPONDYLOARTHROPATHY
     Dosage: UNKNOWN
     Route: 042
  3. MYCOPHENOLATE MOFETIL. [Suspect]
     Active Substance: MYCOPHENOLATE MOFETIL
     Indication: SPONDYLOARTHROPATHY
     Dosage: 1000 MG, BID

REACTIONS (1)
  - Mycobacterium avium complex infection [Recovered/Resolved]
